FAERS Safety Report 12863646 (Version 1)
Quarter: 2016Q4

REPORT INFORMATION
  Report Type: Spontaneous
  Country: SE (occurrence: SE)
  Receive Date: 20161019
  Receipt Date: 20161019
  Transmission Date: 20170207
  Serious: Yes (Death)
  Sender: FDA-Public Use
  Company Number: SE-TEVA-699611ISR

PATIENT
  Age: 101 Year
  Sex: Female

DRUGS (1)
  1. ZOLEDRONIC ACID [Suspect]
     Active Substance: ZOLEDRONIC ACID
     Route: 042

REACTIONS (5)
  - Starvation [Fatal]
  - Malaise [Fatal]
  - Pyrexia [Fatal]
  - Fluid intake reduced [Fatal]
  - Depressed level of consciousness [Fatal]
